FAERS Safety Report 9993039 (Version 1)
Quarter: 2014Q1

REPORT INFORMATION
  Report Type: Report from Study
  Country: US (occurrence: US)
  Receive Date: 20140310
  Receipt Date: 20140310
  Transmission Date: 20141002
  Serious: No
  Sender: FDA-Public Use
  Company Number: US-ABBVIE-13P-163-1177912-00

PATIENT
  Age: 25 Year
  Sex: Female

DRUGS (3)
  1. LUPRON DEPOT [Suspect]
     Indication: ENDOMETRIOSIS
     Route: 030
     Dates: start: 201307
  2. VALIUM [Concomitant]
     Indication: PRODUCT USED FOR UNKNOWN INDICATION
  3. NORETHINDRONE ACETATE [Concomitant]
     Indication: OESTROGEN THERAPY
     Route: 048

REACTIONS (1)
  - Metrorrhagia [Recovered/Resolved]
